FAERS Safety Report 18594384 (Version 13)
Quarter: 2021Q3

REPORT INFORMATION
  Report Type: Spontaneous
  Country: CZ (occurrence: CZ)
  Receive Date: 20201209
  Receipt Date: 20210712
  Transmission Date: 20211014
  Serious: Yes (Hospitalization, Disabling, Other)
  Sender: FDA-Public Use
  Company Number: CZ-MYLANLABS-2020M1099822

PATIENT
  Age: 96 Year
  Sex: Female

DRUGS (87)
  1. TELMISARTAN. [Suspect]
     Active Substance: TELMISARTAN
     Indication: PRODUCT USED FOR UNKNOWN INDICATION
     Dosage: UNK
  2. AMIODARONE [Suspect]
     Active Substance: AMIODARONE
     Indication: PRODUCT USED FOR UNKNOWN INDICATION
     Dosage: UNK
  3. CONTROLOC [Interacting]
     Active Substance: PANTOPRAZOLE SODIUM
     Indication: NAUSEA
     Dosage: 20 MILLIGRAM, QD
     Route: 048
  4. CONTROLOC [Interacting]
     Active Substance: PANTOPRAZOLE SODIUM
     Dosage: UNK
     Route: 065
  5. GUTTALAX [SODIUM PICOSULFATE] [Interacting]
     Active Substance: SODIUM PICOSULFATE
     Dosage: UNK
     Route: 065
  6. GUTTALAX [SODIUM PICOSULFATE] [Interacting]
     Active Substance: SODIUM PICOSULFATE
     Dosage: 10?20 GTT, EVERY EVENING
     Route: 065
  7. BETALOC                            /00376902/ [Suspect]
     Active Substance: METOPROLOL TARTRATE
     Indication: PRODUCT USED FOR UNKNOWN INDICATION
     Dosage: 25 MILLIGRAM, QD
     Route: 048
  8. ELIQUIS [Interacting]
     Active Substance: APIXABAN
     Dosage: UNK
     Route: 065
  9. ELIQUIS [Interacting]
     Active Substance: APIXABAN
     Dosage: 10 MILLIGRAM, QD (5 MG, BID)
     Route: 048
  10. PREDNISONE. [Interacting]
     Active Substance: PREDNISONE
     Dosage: 2?0?0
     Route: 065
  11. PREDNISONE. [Interacting]
     Active Substance: PREDNISONE
     Dosage: 5 MILLIGRAM, QD
     Route: 048
  12. ROSUCARD [Interacting]
     Active Substance: ROSUVASTATIN CALCIUM
     Dosage: UNK
     Route: 065
  13. ACIDUM FOLICUM [Interacting]
     Active Substance: FOLIC ACID
     Indication: PRODUCT USED FOR UNKNOWN INDICATION
     Dosage: UNK, QD
     Route: 065
  14. CALCICHEW D3 [Interacting]
     Active Substance: CALCIUM\CHOLECALCIFEROL
     Dosage: UNK
     Route: 065
  15. BETALOC ZOK [Interacting]
     Active Substance: METOPROLOL SUCCINATE
     Indication: HYPERTENSION
     Dosage: 25 MILLIGRAM, QD
     Route: 048
  16. GUAJACURAN [Suspect]
     Active Substance: GUAIFENESIN
     Dosage: UNK
  17. FENTANYL. [Suspect]
     Active Substance: FENTANYL
     Indication: PRODUCT USED FOR UNKNOWN INDICATION
     Dosage: UNK
  18. EUTHYROX [Interacting]
     Active Substance: LEVOTHYROXINE SODIUM
     Indication: HYPOTHYROIDISM
     Dosage: 100 MICROGRAM, QD
     Route: 065
  19. ORAMELLOX [Interacting]
     Active Substance: MELOXICAM
     Indication: POST HERPETIC NEURALGIA
     Dosage: 1 DOSAGE FORM, QW
     Route: 065
     Dates: start: 2015
  20. ROSUCARD [Interacting]
     Active Substance: ROSUVASTATIN CALCIUM
     Indication: PRODUCT USED FOR UNKNOWN INDICATION
     Dosage: 20 MILLIGRAM, QD
     Route: 048
  21. CORDARONE [Interacting]
     Active Substance: AMIODARONE HYDROCHLORIDE
     Indication: ATRIAL FIBRILLATION
     Dosage: 200 MILLIGRAM, QD
     Route: 048
  22. CORDARONE [Interacting]
     Active Substance: AMIODARONE HYDROCHLORIDE
     Dosage: UNK
  23. CONDROSULF [Interacting]
     Active Substance: SODIUM CHONDROITIN SULFATE
     Indication: RHEUMATOID ARTHRITIS
     Dosage: 800 MILLIGRAM, QD
     Route: 048
  24. BETALOC ZOK [Interacting]
     Active Substance: METOPROLOL SUCCINATE
     Dosage: 25 MILLIGRAM, QD
     Route: 065
  25. NOVALGIN (METAMIZOLE SODIUM) [Suspect]
     Active Substance: METAMIZOLE SODIUM
     Indication: HYPERTENSION
     Dosage: UNK
     Route: 065
  26. CARDILAN                           /06428001/ [Interacting]
     Active Substance: MAGNESIUM ASPARTATE\POTASSIUM ASPARTATE
     Dosage: UNK
     Route: 065
  27. TENSIOMIN [Suspect]
     Active Substance: CAPTOPRIL
     Indication: BLOOD PRESSURE INCREASED
     Dosage: UNK
     Route: 065
  28. FOLIC ACID. [Suspect]
     Active Substance: FOLIC ACID
     Indication: PRODUCT USED FOR UNKNOWN INDICATION
     Dosage: UNK UNK, QD
  29. TRAMADOL. [Suspect]
     Active Substance: TRAMADOL
     Indication: PRODUCT USED FOR UNKNOWN INDICATION
     Dosage: UNK
     Route: 065
  30. TRAMADOL. [Interacting]
     Active Substance: TRAMADOL
     Dosage: OVERUSED
     Route: 048
  31. METHOTREXATE. [Interacting]
     Active Substance: METHOTREXATE
     Dosage: UNK
     Route: 065
  32. CARDILAN [MAGNESIUM HYDROGEN ASPARTATE/POTASSIUM ASPARTATE] [Interacting]
     Active Substance: MAGNESIUM ASPARTATE\POTASSIUM ASPARTATE
     Indication: PRODUCT USED FOR UNKNOWN INDICATION
     Dosage: UNK UNK, QD
     Route: 065
  33. GUTTALAX [SODIUM PICOSULFATE] [Interacting]
     Active Substance: SODIUM PICOSULFATE
     Dosage: 10?20 GUTTES
     Route: 065
  34. TEZEO [Interacting]
     Active Substance: TELMISARTAN
     Dosage: 1 DOSAGE FORM, QD (1DF=80/12.5 MG)
     Route: 065
  35. TEZEO [Interacting]
     Active Substance: TELMISARTAN
     Dosage: UNK
  36. NOVALGIN                           /00169801/ [Interacting]
     Active Substance: ACETAMINOPHEN\CAFFEINE\PROPYPHENAZONE
     Indication: PRODUCT USED FOR UNKNOWN INDICATION
     Dosage: 500 MILLIGRAM, BID
     Route: 065
  37. PANADOL [Interacting]
     Active Substance: ACETAMINOPHEN
     Dosage: 500 MG (1.5 TAB, 3?4 TIMES PER DAY)
     Route: 048
  38. ORAMELLOX [Interacting]
     Active Substance: MELOXICAM
     Dosage: 15 MILLIGRAM, QD
     Route: 048
  39. OXAZEPAM. [Interacting]
     Active Substance: OXAZEPAM
     Indication: PRODUCT USED FOR UNKNOWN INDICATION
     Dosage: OVERUSED
     Route: 065
  40. METHOTREXATE SODIUM. [Suspect]
     Active Substance: METHOTREXATE SODIUM
     Indication: RHEUMATOID ARTHRITIS
     Dosage: 10 MILLIGRAM, QWK
     Route: 065
     Dates: start: 2010
  41. TENSIOMIN [Suspect]
     Active Substance: CAPTOPRIL
     Indication: HYPERTENSION
  42. RAMIPRIL. [Suspect]
     Active Substance: RAMIPRIL
     Indication: PRODUCT USED FOR UNKNOWN INDICATION
     Dosage: UNK
     Route: 065
  43. DONEPEZIL. [Suspect]
     Active Substance: DONEPEZIL
     Indication: PRODUCT USED FOR UNKNOWN INDICATION
     Dosage: UNK
     Route: 065
  44. ROSUVASTATIN. [Suspect]
     Active Substance: ROSUVASTATIN
     Indication: PRODUCT USED FOR UNKNOWN INDICATION
     Dosage: UNK
  45. DUROGESIC [Interacting]
     Active Substance: FENTANYL
     Indication: PAIN
     Dosage: 25 UG/H EVERY 72 HOURS
     Route: 062
     Dates: start: 2015
  46. CARDILAN [MAGNESIUM HYDROGEN ASPARTATE/POTASSIUM ASPARTATE] [Interacting]
     Active Substance: MAGNESIUM ASPARTATE\POTASSIUM ASPARTATE
     Dosage: UNK
  47. GUTTALAX [SODIUM PICOSULFATE] [Interacting]
     Active Substance: SODIUM PICOSULFATE
     Dosage: 1 DOSAGE FORM
     Route: 065
  48. PANADOL [Interacting]
     Active Substance: ACETAMINOPHEN
     Indication: PAIN
     Dosage: 1.5 DF (3?4 TIMES PER DAY)
     Route: 065
  49. PANADOL [Interacting]
     Active Substance: ACETAMINOPHEN
     Dosage: UNK
  50. CALCICHEW D3 [Interacting]
     Active Substance: CALCIUM\CHOLECALCIFEROL
     Indication: CALCIUM DEFICIENCY
     Dosage: UNK UNK, QD
     Route: 065
  51. STILNOX [Interacting]
     Active Substance: ZOLPIDEM TARTRATE
     Indication: PRODUCT USED FOR UNKNOWN INDICATION
     Dosage: OVERUSED
     Route: 065
  52. MAGNESIUM ASPARTATE [Interacting]
     Active Substance: MAGNESIUM ASPARTATE
     Indication: PRODUCT USED FOR UNKNOWN INDICATION
     Dosage: UNK
     Route: 065
  53. AMLODIPINE [Suspect]
     Active Substance: AMLODIPINE BESYLATE
     Indication: PRODUCT USED FOR UNKNOWN INDICATION
     Dosage: UNK
  54. PANTOPRAZOLE [Suspect]
     Active Substance: PANTOPRAZOLE
     Indication: PRODUCT USED FOR UNKNOWN INDICATION
     Dosage: UNK
  55. DUROGESIC [Interacting]
     Active Substance: FENTANYL
     Indication: POST HERPETIC NEURALGIA
     Dosage: 25 MICROGRAM,Q72H
     Route: 062
     Dates: start: 2015
  56. GUTTALAX [SODIUM PICOSULFATE] [Interacting]
     Active Substance: SODIUM PICOSULFATE
     Indication: CONSTIPATION
     Dosage: 1 DOSAGE FORM (1DF=10?20 GUTTES)
     Route: 065
  57. TEZEO [Interacting]
     Active Substance: TELMISARTAN
     Dosage: 1 DOSAGE FORM (1DF=80/12.5 MG)
     Route: 065
  58. OXAZEPAM. [Interacting]
     Active Substance: OXAZEPAM
     Dosage: UNK
     Route: 048
  59. ALPRAZOLAM. [Suspect]
     Active Substance: ALPRAZOLAM
     Indication: PRODUCT USED FOR UNKNOWN INDICATION
     Dosage: UNK
  60. DUROGESIC [Interacting]
     Active Substance: FENTANYL
     Dosage: UNK
  61. EUTHYROX [Interacting]
     Active Substance: LEVOTHYROXINE SODIUM
     Indication: AUTOIMMUNE THYROIDITIS
     Dosage: 100 MICROGRAM, QD
     Route: 065
  62. TEZEO [Interacting]
     Active Substance: TELMISARTAN
     Indication: HYPERTENSION
     Dosage: 80/12.5 MG
     Route: 048
  63. ELIQUIS [Interacting]
     Active Substance: APIXABAN
     Indication: ANTICOAGULANT THERAPY
     Dosage: 5 MILLIGRAM, QD
     Route: 048
  64. PREDNISONE. [Interacting]
     Active Substance: PREDNISONE
     Indication: STEROID THERAPY
     Dosage: UNK UNK, QD
     Route: 065
  65. PREDNISONE. [Interacting]
     Active Substance: PREDNISONE
     Dosage: UNK
  66. NOVALGIN                           /00169801/ [Interacting]
     Active Substance: ACETAMINOPHEN\CAFFEINE\PROPYPHENAZONE
     Dosage: 500 MILLIGRAM, Q12H
     Route: 065
  67. ACIDUM FOLICUM [Interacting]
     Active Substance: FOLIC ACID
     Dosage: UNK
     Route: 065
  68. POTASSIUM ASPARTATE [Interacting]
     Active Substance: POTASSIUM ASPARTATE
     Indication: PRODUCT USED FOR UNKNOWN INDICATION
     Dosage: UNK
     Route: 065
  69. NOVALGIN (METAMIZOLE SODIUM) [Suspect]
     Active Substance: METAMIZOLE SODIUM
     Dosage: 1000 MILLIGRAM, QD (500 MG BID)
     Route: 065
  70. CARDILAN                           /06428001/ [Interacting]
     Active Substance: MAGNESIUM ASPARTATE\POTASSIUM ASPARTATE
     Indication: ENCEPHALOPATHY
     Dosage: UNK UNK, QD
     Route: 048
  71. METHOTREXATE. [Interacting]
     Active Substance: METHOTREXATE
     Indication: RHEUMATOID ARTHRITIS
     Dosage: 10 MILLIGRAM, QW
     Route: 065
     Dates: start: 2010
  72. METHOTREXATE. [Interacting]
     Active Substance: METHOTREXATE
     Dosage: 10 MILLIGRAM, QD (SUNDAY)
     Route: 048
  73. MELOXICAM. [Suspect]
     Active Substance: MELOXICAM
     Indication: PRODUCT USED FOR UNKNOWN INDICATION
     Dosage: 15 MILLIGRAM
     Route: 065
  74. PREGABALIN. [Suspect]
     Active Substance: PREGABALIN
     Indication: POST HERPETIC NEURALGIA
     Dosage: UNK
     Route: 065
  75. CONDROSULF [Interacting]
     Active Substance: SODIUM CHONDROITIN SULFATE
     Dosage: UNK
     Route: 065
  76. GUAJACURAN [Suspect]
     Active Substance: GUAIFENESIN
     Indication: HYPERTENSION
     Dosage: UNK
     Route: 042
  77. IBALGIN [Interacting]
     Active Substance: IBUPROFEN
     Indication: PAIN
     Dosage: UNK
     Route: 065
  78. OMEPRAZOLE. [Suspect]
     Active Substance: OMEPRAZOLE
     Indication: PRODUCT USED FOR UNKNOWN INDICATION
     Dosage: UNK
  79. METOPROLOL. [Suspect]
     Active Substance: METOPROLOL
     Indication: PRODUCT USED FOR UNKNOWN INDICATION
     Dosage: UNK
  80. EUTHYROX [Interacting]
     Active Substance: LEVOTHYROXINE SODIUM
     Dosage: UNK
  81. BETALOC                            /00376902/ [Suspect]
     Active Substance: METOPROLOL TARTRATE
     Dosage: UNK
  82. METAMIZOLE [Interacting]
     Active Substance: METAMIZOLE
     Indication: POST HERPETIC NEURALGIA
     Dosage: UNK
     Route: 065
  83. ORAMELLOX [Interacting]
     Active Substance: MELOXICAM
     Indication: PAIN
     Dosage: UNK
     Route: 065
  84. AGEN [Interacting]
     Active Substance: AMLODIPINE BESYLATE
     Indication: HYPERTENSION
     Dosage: 5 MILLIGRAM, QD
     Route: 048
  85. AGEN [Interacting]
     Active Substance: AMLODIPINE BESYLATE
     Dosage: UNK
     Route: 065
  86. HYPNOGEN [Interacting]
     Active Substance: ZOLPIDEM TARTRATE
     Indication: PRODUCT USED FOR UNKNOWN INDICATION
     Dosage: OVERUSED
     Route: 065
  87. TRAZODONE [Suspect]
     Active Substance: TRAZODONE HYDROCHLORIDE
     Indication: PRODUCT USED FOR UNKNOWN INDICATION
     Dosage: UNK

REACTIONS (43)
  - Atrial fibrillation [Recovered/Resolved]
  - Intentional product misuse [Recovered/Resolved]
  - Liver function test increased [Recovered/Resolved]
  - Nausea [Recovered/Resolved]
  - Poor quality sleep [Recovered/Resolved]
  - Hypertension [Recovering/Resolving]
  - Fall [Recovering/Resolving]
  - Deafness [Recovered/Resolved]
  - Contusion [Recovered/Resolved]
  - Encephalopathy [Recovered/Resolved]
  - Mobility decreased [Recovered/Resolved]
  - Fracture [Recovered/Resolved]
  - Hypoacusis [Recovered/Resolved]
  - Product use issue [Recovered/Resolved]
  - Reduced facial expression [Recovered/Resolved]
  - Oxygen saturation decreased [Unknown]
  - Hypokalaemia [Recovered/Resolved]
  - Cognitive disorder [Recovered/Resolved]
  - Condition aggravated [Recovered/Resolved]
  - Discomfort [Recovered/Resolved]
  - Listless [Recovering/Resolving]
  - Confusional state [Recovered/Resolved]
  - Pelvic fracture [Recovered/Resolved]
  - Restlessness [Recovered/Resolved]
  - Overdose [Recovered/Resolved]
  - Dehydration [Recovered/Resolved]
  - Loss of personal independence in daily activities [Recovered/Resolved]
  - Hyponatraemia [Recovered/Resolved]
  - Urinary retention [Recovered/Resolved]
  - Dizziness [Recovering/Resolving]
  - Sleep disorder [Recovering/Resolving]
  - Apathy [Recovered/Resolved]
  - Vertigo [Recovered/Resolved]
  - Drug abuse [Unknown]
  - Bedridden [Recovered/Resolved]
  - Medication error [Recovered/Resolved]
  - Prescription drug used without a prescription [Unknown]
  - Affect lability [Recovered/Resolved]
  - Delirium [Recovered/Resolved]
  - Head discomfort [Recovered/Resolved]
  - Anxiety [Recovered/Resolved]
  - Concomitant disease aggravated [Recovering/Resolving]
  - Foreign body [Recovered/Resolved]

NARRATIVE: CASE EVENT DATE: 2019
